FAERS Safety Report 25287744 (Version 5)
Quarter: 2025Q3

REPORT INFORMATION
  Report Type: Spontaneous
  Country: US (occurrence: US)
  Receive Date: 20250509
  Receipt Date: 20250707
  Transmission Date: 20251021
  Serious: No
  Sender: PFIZER
  Company Number: US-PFIZER INC-202500035037

PATIENT
  Age: 64 Year
  Sex: Female
  Weight: 125.19 kg

DRUGS (1)
  1. GENOTROPIN [Suspect]
     Active Substance: SOMATROPIN
     Indication: Pituitary tumour
     Dosage: 0.4 MG, DAILY
     Dates: start: 20250403

REACTIONS (3)
  - Product preparation error [Unknown]
  - Device leakage [Unknown]
  - Drug dose omission by device [Unknown]
